FAERS Safety Report 8012854-0 (Version None)
Quarter: 2011Q4

REPORT INFORMATION
  Report Type: 
  Country: None (occurrence: None)
  Receive Date: 20111229
  Receipt Date: 20111221
  Transmission Date: 20120403
  Serious: Yes (Other)
  Sender: FDA-Public Use
  Company Number: US-BRISTOL-MYERS SQUIBB COMPANY-16261125

PATIENT
  Age: 48 Year
  Sex: Female

DRUGS (1)
  1. ONGLYZA [Suspect]
     Dosage: THERAPY STARTED ON SEP.

REACTIONS (1)
  - PANCREATITIS [None]
